FAERS Safety Report 5368540-9 (Version None)
Quarter: 2007Q2

REPORT INFORMATION
  Report Type: 
  Country: None (occurrence: None)
  Receive Date: 20070625
  Receipt Date: 20070618
  Transmission Date: 20071010
  Serious: Yes (Other)
  Sender: FDA-Public Use
  Company Number: ZA-JNJFOC-20070506640

PATIENT
  Sex: Male

DRUGS (5)
  1. DURAGESIC-100 [Suspect]
     Route: 062
  2. DURAGESIC-100 [Suspect]
     Dosage: 3X 75 UG/HR PATCHES
     Route: 062
  3. DURAGESIC-100 [Suspect]
     Indication: BONE PAIN
     Route: 062
  4. GLIBENCLAMIDE [Concomitant]
     Indication: DIABETES MELLITUS NON-INSULIN-DEPENDENT
     Route: 065
  5. HORMONAL THERAPY [Concomitant]
     Indication: PROSTATE CANCER
     Route: 065

REACTIONS (6)
  - ANXIETY [None]
  - ASTHENIA [None]
  - BEDRIDDEN [None]
  - DIZZINESS [None]
  - DRUG ADMINISTRATION ERROR [None]
  - NAUSEA [None]
